FAERS Safety Report 13251573 (Version 1)
Quarter: 2017Q1

REPORT INFORMATION
  Report Type: Report from Study
  Country: US (occurrence: US)
  Receive Date: 20170220
  Receipt Date: 20170220
  Transmission Date: 20170428
  Serious: No
  Sender: FDA-Public Use
  Company Number: US-TEVA-711862USA

PATIENT
  Sex: Female
  Weight: 53.5 kg

DRUGS (8)
  1. VIVELLE-DOT [Concomitant]
     Active Substance: ESTRADIOL
  2. VITAMIN D [Concomitant]
     Active Substance: CHOLECALCIFEROL
  3. PERCOCET [Concomitant]
     Active Substance: ACETAMINOPHEN\OXYCODONE HYDROCHLORIDE
     Dosage: 10/325 MG
  4. PROGESTERONE. [Suspect]
     Active Substance: PROGESTERONE
     Route: 065
  5. DIFLUCAN [Concomitant]
     Active Substance: FLUCONAZOLE
  6. MULTIVITAMIN [Concomitant]
     Active Substance: VITAMINS
  7. VITAMIN B COMPLEX [Concomitant]
     Active Substance: CYANOCOBALAMIN\DEXPANTHENOL\NIACINAMIDE\PYRIDOXINE HYDROCHLORIDE\RIBOFLAVIN 5^-PHOSPHATE SODIUM\THIAMINE HYDROCHLORIDE\VITAMIN B COMPLEX
  8. MILK THISTLE [Concomitant]
     Active Substance: MILK THISTLE

REACTIONS (1)
  - Malaise [Recovered/Resolved]
